FAERS Safety Report 9137322 (Version 1)
Quarter: 2013Q1

REPORT INFORMATION
  Report Type: Spontaneous
  Country: US (occurrence: US)
  Receive Date: 20130219
  Receipt Date: 20130219
  Transmission Date: 20140127
  Serious: Yes (Other)
  Sender: FDA-Public Use
  Company Number: US-BRISTOL-MYERS SQUIBB COMPANY-16502114

PATIENT
  Age: 52 Year
  Sex: Female

DRUGS (3)
  1. ORENCIA [Suspect]
     Dosage: LAST INF: 30MAR2012.
     Dates: start: 201103
  2. METHOTREXATE [Suspect]
  3. ADVIL [Concomitant]

REACTIONS (5)
  - Pneumonia [Unknown]
  - Pain [Unknown]
  - Frustration [Unknown]
  - Alopecia [Unknown]
  - Madarosis [Unknown]
